FAERS Safety Report 7831099-8 (Version None)
Quarter: 2011Q4

REPORT INFORMATION
  Report Type: 
  Country: None (occurrence: None)
  Receive Date: 20111021
  Receipt Date: 20111019
  Transmission Date: 20120403
  Serious: Yes (Death, Life-Threatening, Hospitalization, Disabling)
  Sender: FDA-Public Use
  Company Number: PHHY2011NL77030

PATIENT
  Sex: Female
  Weight: 62 kg

DRUGS (11)
  1. ZOMETA [Suspect]
     Dosage: 4 MG/5 ML,1X PER 28 DAYS
     Dates: start: 20110829
  2. PLAVIX [Concomitant]
     Dosage: 75 MG,
     Route: 065
  3. CHEMOTHERAPEUTICS [Concomitant]
  4. ZOMETA [Suspect]
     Indication: BREAST CANCER METASTATIC
     Dosage: 4 MG/5 ML,1X PER 28 DAYS
     Dates: start: 20110328
  5. ZOMETA [Suspect]
     Dosage: 4 MG/5 ML,1X PER 28 DAYS
     Dates: start: 20110721
  6. LAF 389A [Concomitant]
     Dosage: UNK UKN, UNK
     Dates: end: 20110609
  7. CORTICOSTEROIDS [Concomitant]
     Dosage: UNK UKN, UNK
  8. ARIMIDEX [Concomitant]
     Dosage: UNK
     Route: 065
  9. ACETOSAL [Concomitant]
     Dosage: 80 MG, QD
  10. EFFEXOR [Concomitant]
     Dosage: UNK UKN, UNK
     Route: 065
  11. TRAMADOL HCL [Concomitant]
     Dosage: 2X50MG
     Route: 065

REACTIONS (11)
  - NEOPLASM PROGRESSION [None]
  - NEOPLASM MALIGNANT [None]
  - METASTASES TO ABDOMINAL WALL [None]
  - SLEEP DISORDER [None]
  - PAIN IN EXTREMITY [None]
  - FATIGUE [None]
  - DYSPNOEA [None]
  - MUSCULOSKELETAL PAIN [None]
  - BURSITIS [None]
  - CARDIAC FAILURE [None]
  - DEHYDRATION [None]
